FAERS Safety Report 8062390-0 (Version None)
Quarter: 2012Q1

REPORT INFORMATION
  Report Type: 
  Country: None (occurrence: None)
  Receive Date: 20120123
  Receipt Date: 20120116
  Transmission Date: 20120608
  Serious: Yes (Other)
  Sender: FDA-Public Use
  Company Number: MX-SANOFI-AVENTIS-2011SA057802

PATIENT
  Age: 38 Year
  Sex: Male
  Weight: 104 kg

DRUGS (1)
  1. LANTUS [Suspect]
     Indication: DIABETES MELLITUS
     Route: 058
     Dates: start: 20090101

REACTIONS (1)
  - MALIGNANT MELANOMA [None]
